FAERS Safety Report 9773826 (Version 2)
Quarter: 2014Q1

REPORT INFORMATION
  Report Type: Report from Study
  Country: US (occurrence: US)
  Receive Date: 20131220
  Receipt Date: 20140108
  Transmission Date: 20141002
  Serious: Yes (Disabling)
  Sender: FDA-Public Use
  Company Number: US-ROCHE-1320181

PATIENT
  Sex: Male

DRUGS (6)
  1. LUCENTIS [Suspect]
     Indication: DIABETIC RETINAL OEDEMA
     Route: 050
     Dates: start: 20130926, end: 20130926
  2. AVASTIN [Suspect]
     Indication: DIABETIC RETINAL OEDEMA
     Route: 065
  3. EPOGEN [Concomitant]
     Route: 065
  4. SENSIPAR [Concomitant]
  5. FOSRENOL [Concomitant]
     Dosage: TAKE WITH MEALS
     Route: 065
  6. INSULIN [Concomitant]
     Dosage: AS REQUIRED
     Route: 058

REACTIONS (5)
  - Blindness [Recovering/Resolving]
  - No therapeutic response [Unknown]
  - Asthenia [Recovering/Resolving]
  - Fatigue [Unknown]
  - Haemoglobin decreased [Recovering/Resolving]
